FAERS Safety Report 6500242-5 (Version None)
Quarter: 2009Q4

REPORT INFORMATION
  Report Type: 
  Country: None (occurrence: None)
  Receive Date: 20091215
  Receipt Date: 20091215
  Transmission Date: 20100525
  Serious: Yes (Life-Threatening, Other)
  Sender: FDA-Public Use
  Company Number: None

PATIENT
  Age: 37 Year
  Sex: Male
  Weight: 74.8435 kg

DRUGS (1)
  1. SUDAFED PE 10MG SUDAFED PE [Suspect]
     Indication: NASAL CONGESTION
     Dosage: 1 PILL -10MG- EVERY 4 HRS PO
     Route: 048
     Dates: start: 20091213, end: 20091214

REACTIONS (2)
  - HEART RATE INCREASED [None]
  - HYPERHIDROSIS [None]
